FAERS Safety Report 4433581-2 (Version None)
Quarter: 2004Q3

REPORT INFORMATION
  Report Type: 
  Country: None (occurrence: None)
  Receive Date: 20040824
  Receipt Date: 20040812
  Transmission Date: 20050211
  Serious: No
  Sender: FDA-Public Use
  Company Number: 04H-163-0270889-00

PATIENT
  Age: 25 Day
  Sex: Male
  Weight: 2.514 kg

DRUGS (1)
  1. LIDOCAINE HCL [Suspect]
     Indication: ANAESTHESIA

REACTIONS (3)
  - CONVULSION NEONATAL [None]
  - GRAND MAL CONVULSION [None]
  - POST PROCEDURAL COMPLICATION [None]
